FAERS Safety Report 6723390-3 (Version None)
Quarter: 2010Q2

REPORT INFORMATION
  Report Type: 
  Country: None (occurrence: None)
  Receive Date: 20100513
  Receipt Date: 20091223
  Transmission Date: 20101027
  Serious: No
  Sender: FDA-Public Use
  Company Number: US-ABBOTT-09P-163-0616945-00

PATIENT
  Sex: Female
  Weight: 104.42 kg

DRUGS (1)
  1. GENGRAF [Suspect]
     Indication: RENAL TRANSPLANT

REACTIONS (2)
  - BLOOD CREATININE INCREASED [None]
  - VOMITING [None]
